FAERS Safety Report 7558925-4 (Version None)
Quarter: 2011Q2

REPORT INFORMATION
  Report Type: 
  Country: None (occurrence: None)
  Receive Date: 20110621
  Receipt Date: 20110609
  Transmission Date: 20111010
  Serious: No
  Sender: FDA-Public Use
  Company Number: PHHY2011US51247

PATIENT
  Sex: Female

DRUGS (10)
  1. STEROIDS NOS [Suspect]
     Dosage: UNK
  2. HIZENTRA [Concomitant]
     Indication: MULTIPLE SCLEROSIS
     Dosage: 10 G, PER WEEK
  3. IMMUNOGLOBULINS [Suspect]
     Dosage: UNK
  4. HYDROCHLOROTHIAZIDE [Concomitant]
  5. PERCOCET [Concomitant]
     Indication: PAIN IN EXTREMITY
  6. LOSARTAN POTASSIUM [Concomitant]
     Dosage: UNK
     Dates: start: 20110301
  7. PERCOCET [Concomitant]
     Indication: BACK PAIN
  8. ANTIBIOTICS [Suspect]
  9. TASIGNA [Suspect]
     Dosage: 200 MG, QD
  10. LEVOXYL [Concomitant]
     Dosage: 100 UG, UNK

REACTIONS (3)
  - DYSPHAGIA [None]
  - OESOPHAGEAL SPASM [None]
  - DYSKINESIA OESOPHAGEAL [None]
